FAERS Safety Report 4610211-8 (Version None)
Quarter: 2005Q1

REPORT INFORMATION
  Report Type: 
  Country: None (occurrence: None)
  Receive Date: 20050314
  Receipt Date: 20050225
  Transmission Date: 20050727
  Serious: Yes (Hospitalization)
  Sender: FDA-Public Use
  Company Number: 2004-BP-11602BP

PATIENT
  Age: 74 Year
  Sex: Male

DRUGS (11)
  1. MOBIC [Suspect]
     Indication: OSTEOARTHRITIS
     Dosage: NR (7.5 MG, 1 QD) PO
     Route: 048
  2. COUMADIN [Concomitant]
  3. FUROSEMIDE [Concomitant]
  4. ALDACTONE [Concomitant]
  5. COREG [Concomitant]
  6. TRAMADOL HCL [Concomitant]
  7. FLOMAX [Concomitant]
  8. ACTOSE [Concomitant]
  9. COZAAR [Concomitant]
  10. PRANDIN (DEFLAZACORT) [Concomitant]
  11. K-DUR 10 [Concomitant]

REACTIONS (5)
  - DEHYDRATION [None]
  - OEDEMA PERIPHERAL [None]
  - SKIN ULCER [None]
  - STAPHYLOCOCCAL INFECTION [None]
  - WEIGHT DECREASED [None]
